FAERS Safety Report 4347699-6 (Version None)
Quarter: 2004Q2

REPORT INFORMATION
  Report Type: 
  Country: None (occurrence: None)
  Receive Date: 20040422
  Receipt Date: 20040414
  Transmission Date: 20050107
  Serious: Yes (Hospitalization, Other)
  Sender: FDA-Public Use
  Company Number: US-JNJFOC-20040203070

PATIENT
  Age: 64 Year
  Sex: Male
  Weight: 99.7913 kg

DRUGS (14)
  1. NATRECOR [Suspect]
     Indication: CARDIAC FAILURE CONGESTIVE
     Dosage: 2 UG/KG, INTRAVENOUS
     Route: 042
     Dates: start: 20040212, end: 20040212
  2. DIGOXIN [Concomitant]
  3. ACETYLSALICYLIC ACID SRT [Concomitant]
  4. ZESTRIL [Concomitant]
  5. LIPITOR [Concomitant]
  6. FLOMAX [Concomitant]
  7. TOPROL-XL [Concomitant]
  8. ZOLOFT [Concomitant]
  9. COUMADIN [Concomitant]
  10. `NEURONTIN (GABAPENTIN) [Concomitant]
  11. LASIX [Concomitant]
  12. LANTUS INSULIN (INSULIN GLARGINE) [Concomitant]
  13. HUMALOG INSULIN (INSULIN LISPRO) [Concomitant]
  14. OXYCONTIN [Concomitant]

REACTIONS (22)
  - APHASIA [None]
  - BACTERIA STOOL IDENTIFIED [None]
  - CHILLS [None]
  - CULTURE URINE POSITIVE [None]
  - DEHYDRATION [None]
  - DIARRHOEA [None]
  - HAEMODIALYSIS [None]
  - HYPERGLYCAEMIA [None]
  - HYPERTENSION [None]
  - HYPERVENTILATION [None]
  - HYPOTHERMIA [None]
  - INFUSION RELATED REACTION [None]
  - KLEBSIELLA INFECTION [None]
  - LETHARGY [None]
  - RENAL FAILURE [None]
  - SEPSIS [None]
  - STAPHYLOCOCCAL BACTERAEMIA [None]
  - TACHYPNOEA [None]
  - URAEMIC ENCEPHALOPATHY [None]
  - VOMITING [None]
  - WEIGHT INCREASED [None]
  - WHITE BLOOD CELL COUNT INCREASED [None]
